FAERS Safety Report 5628338-0 (Version None)
Quarter: 2008Q1

REPORT INFORMATION
  Report Type: 
  Country: None (occurrence: None)
  Receive Date: 20080131
  Receipt Date: 20071221
  Transmission Date: 20080703
  Serious: No
  Sender: FDA-Public Use
  Company Number: 163-21880-07111153

PATIENT
  Age: 82 Year
  Sex: Male

DRUGS (3)
  1. REVLIMID [Suspect]
     Indication: MULTIPLE MYELOMA
     Dosage: 25 MG, DAILY X 21 DAYS, ORAL
     Route: 048
     Dates: start: 20071022, end: 20071101
  2. REVLIMID [Suspect]
     Dosage: 15 MG, X21 DAYS EVERY 28 DAYS, ORAL
     Route: 048
     Dates: start: 20071123
  3. DEXAMETHASONE TAB [Suspect]
     Indication: DRUG USE FOR UNKNOWN INDICATION
     Dosage: X4 DAYS
     Dates: start: 20071123

REACTIONS (11)
  - ASTHENIA [None]
  - CONSTIPATION [None]
  - DECREASED APPETITE [None]
  - DISTURBANCE IN ATTENTION [None]
  - DYSGEUSIA [None]
  - FATIGUE [None]
  - FULL BLOOD COUNT DECREASED [None]
  - NAUSEA [None]
  - ORAL PAIN [None]
  - PAINFUL RESPIRATION [None]
  - PHARYNGOLARYNGEAL PAIN [None]
